FAERS Safety Report 5652496-5 (Version None)
Quarter: 2008Q1

REPORT INFORMATION
  Report Type: 
  Country: None (occurrence: None)
  Receive Date: 20080306
  Receipt Date: 20080227
  Transmission Date: 20080703
  Serious: Yes (Hospitalization)
  Sender: FDA-Public Use
  Company Number: US-JNJFOC-20080300021

PATIENT
  Sex: Female
  Weight: 63.5 kg

DRUGS (15)
  1. FENTANYL TRANSDERMAL SYSTEM [Suspect]
     Indication: BACK PAIN
     Route: 062
  2. GABAPENTIN [Concomitant]
     Indication: NEURALGIA
     Route: 048
  3. CYANOCOBALAM [Concomitant]
     Route: 065
  4. HYDROCHLOROT [Concomitant]
     Indication: BLOOD PRESSURE
     Route: 048
  5. LEVAQUIN [Concomitant]
     Indication: BACTERIAL INFECTION
     Route: 048
  6. LIDODERM [Concomitant]
     Indication: BACK PAIN
     Route: 062
  7. LIDODERM [Concomitant]
     Indication: ARTHRALGIA
     Route: 062
  8. MECLIZINE [Concomitant]
     Indication: DIZZINESS
     Route: 048
  9. NAPROXEN [Concomitant]
     Indication: PAIN
     Route: 048
  10. PROPO-N APAP [Concomitant]
     Indication: PAIN
     Dosage: 10/ 100
     Route: 048
  11. TRANSDERM SC [Concomitant]
     Indication: DIZZINESS
     Route: 062
  12. HYDROCHLOROTHIAZIDE [Concomitant]
     Indication: BLOOD PRESSURE
     Route: 048
  13. ZETIA [Concomitant]
     Indication: BLOOD CHOLESTEROL
     Route: 048
  14. ZOLPIDEM TARTRATE [Concomitant]
     Indication: INSOMNIA
     Route: 048
  15. ASPIRIN [Concomitant]
     Route: 048

REACTIONS (3)
  - DRUG INEFFECTIVE [None]
  - FALL [None]
  - MENTAL STATUS CHANGES [None]
